FAERS Safety Report 9586926 (Version 1)
Quarter: 2013Q4

REPORT INFORMATION
  Report Type: Spontaneous
  Country: US (occurrence: US)
  Receive Date: 20131003
  Receipt Date: 20131003
  Transmission Date: 20140711
  Serious: Yes (Other)
  Sender: FDA-Public Use
  Company Number: US-CELGENEUS-163-21880-13093569

PATIENT
  Sex: Female

DRUGS (1)
  1. REVLIMID [Suspect]
     Indication: PLASMA CELL MYELOMA
     Dosage: 25 MILLIGRAM
     Route: 048
     Dates: start: 201308

REACTIONS (8)
  - Gastrointestinal disorder [Unknown]
  - Feeling abnormal [Unknown]
  - Peripheral sensory neuropathy [Unknown]
  - Herpes zoster [Unknown]
  - Oedema peripheral [Unknown]
  - Erythema [Unknown]
  - Diarrhoea [Unknown]
  - Tremor [Unknown]
